FAERS Safety Report 21647456 (Version 1)
Quarter: 2022Q4

REPORT INFORMATION
  Report Type: Spontaneous
  Country: US (occurrence: US)
  Receive Date: 20221128
  Receipt Date: 20221128
  Transmission Date: 20230113
  Serious: No
  Sender: FDA-Public Use
  Company Number: US-JNJFOC-20221150723

PATIENT
  Sex: Male

DRUGS (1)
  1. CONCERTA [Suspect]
     Active Substance: METHYLPHENIDATE HYDROCHLORIDE
     Indication: Attention deficit hyperactivity disorder
     Dosage: VARYING DOSES OF 36 MG, 54 MG AND 108 MG
     Route: 048

REACTIONS (5)
  - Rebound effect [Unknown]
  - Agitation [Unknown]
  - Irritability [Unknown]
  - Aggression [Unknown]
  - Off label use [Unknown]
